FAERS Safety Report 8965110 (Version 2)
Quarter: 2013Q1

REPORT INFORMATION
  Report Type: Spontaneous
  Country: SE (occurrence: SE)
  Receive Date: 20121214
  Receipt Date: 20130221
  Transmission Date: 20140127
  Serious: Yes (Hospitalization, Other)
  Sender: FDA-Public Use
  Company Number: SE-SANOFI-AVENTIS-2012SA089256

PATIENT
  Age: 17 Year
  Sex: Male

DRUGS (1)
  1. RIFADIN [Suspect]
     Indication: PROPHYLAXIS
     Route: 042
     Dates: start: 20120605, end: 20120605

REACTIONS (4)
  - Acidosis [Unknown]
  - Hepatic necrosis [Not Recovered/Not Resolved]
  - Disseminated intravascular coagulation [Unknown]
  - Incorrect drug administration rate [Unknown]
